FAERS Safety Report 5004306-7 (Version None)
Quarter: 2006Q2

REPORT INFORMATION
  Report Type: 
  Country: None (occurrence: None)
  Receive Date: 20060517
  Receipt Date: 20041201
  Transmission Date: 20061013
  Serious: Yes (Hospitalization)
  Sender: FDA-Public Use
  Company Number: US-MERCK-0412USA00317

PATIENT
  Age: 62 Year
  Sex: Male

DRUGS (2)
  1. VIOXX [Suspect]
     Route: 048
  2. ASPIRIN [Concomitant]
     Route: 065

REACTIONS (6)
  - ACUTE CORONARY SYNDROME [None]
  - ANGINA PECTORIS [None]
  - CORONARY ARTERY DISEASE [None]
  - CORONARY ARTERY STENOSIS [None]
  - MYOCARDIAL INFARCTION [None]
  - POLYTRAUMATISM [None]
